FAERS Safety Report 4804658-4 (Version None)
Quarter: 2005Q4

REPORT INFORMATION
  Report Type: 
  Country: None (occurrence: None)
  Receive Date: 20051014
  Receipt Date: 20050911
  Transmission Date: 20060501
  Serious: Yes (Other)
  Sender: FDA-Public Use
  Company Number: 2005PV002952

PATIENT
  Age: 43 Year
  Sex: Female
  Weight: 99.7913 kg

DRUGS (11)
  1. BYETTA [Suspect]
     Indication: DIABETES MELLITUS NON-INSULIN-DEPENDENT
     Dosage: 5 MCG; BID; SC
     Route: 058
     Dates: start: 20050908, end: 20050910
  2. GLUCOPHAGE [Concomitant]
  3. AVANDIA [Concomitant]
  4. PRANDIN [Concomitant]
  5. LIPITOR [Concomitant]
  6. VALTREX [Concomitant]
  7. DETROL LA [Concomitant]
  8. PREMARIN [Concomitant]
  9. ULTRAM [Concomitant]
  10. SINGULAIR [Concomitant]
  11. PROZAC [Concomitant]

REACTIONS (16)
  - ALCOHOL USE [None]
  - ASTHENIA [None]
  - CRYING [None]
  - DIZZINESS [None]
  - FATIGUE [None]
  - FEELING ABNORMAL [None]
  - HYPERHIDROSIS [None]
  - LETHARGY [None]
  - LOSS OF CONSCIOUSNESS [None]
  - MOTOR DYSFUNCTION [None]
  - MYDRIASIS [None]
  - NAUSEA [None]
  - OCULAR HYPERAEMIA [None]
  - PARALYSIS [None]
  - SOMNOLENCE [None]
  - SPEECH DISORDER [None]
